FAERS Safety Report 7997676-9 (Version None)
Quarter: 2011Q4

REPORT INFORMATION
  Report Type: 
  Country: None (occurrence: None)
  Receive Date: 20111221
  Receipt Date: 20111213
  Transmission Date: 20120403
  Serious: Yes (Other)
  Sender: FDA-Public Use
  Company Number: JP-ROCHE-1014077

PATIENT
  Sex: Female
  Weight: 46 kg

DRUGS (3)
  1. HERCEPTIN [Suspect]
     Indication: BREAST CANCER
     Dosage: DOSAGE IS UNCERTAIN.
     Route: 041
     Dates: start: 20110830, end: 20110830
  2. HERCEPTIN [Suspect]
     Route: 041
     Dates: start: 20110926, end: 20110926
  3. HERCEPTIN [Suspect]
     Route: 041
     Dates: start: 20111017, end: 20111017

REACTIONS (1)
  - HEPATITIS [None]
